FAERS Safety Report 9038753 (Version 1)
Quarter: 2013Q1

REPORT INFORMATION
  Report Type: Spontaneous
  Country: US (occurrence: US)
  Receive Date: 20130129
  Receipt Date: 20130129
  Transmission Date: 20140127
  Serious: Yes (Hospitalization, Other)
  Sender: FDA-Public Use
  Company Number: US-ABBOTT-13P-163-1039028-00

PATIENT
  Age: 59 None
  Sex: Male
  Weight: 93.07 kg

DRUGS (11)
  1. HUMIRA [Suspect]
     Indication: RHEUMATOID ARTHRITIS
     Dates: start: 2009, end: 201202
  2. LEFLUNOMIDE [Concomitant]
     Indication: RHEUMATOID ARTHRITIS
  3. PREDNISONE [Concomitant]
     Indication: ASTHMA
  4. COREG [Concomitant]
     Indication: PRODUCT USED FOR UNKNOWN INDICATION
  5. VYTORIN [Concomitant]
     Indication: PRODUCT USED FOR UNKNOWN INDICATION
     Dates: end: 201201
  6. HYZAAR [Concomitant]
     Indication: PRODUCT USED FOR UNKNOWN INDICATION
  7. OMPRAZOLE [Concomitant]
     Indication: PRODUCT USED FOR UNKNOWN INDICATION
  8. PERCOCET [Concomitant]
     Indication: PRODUCT USED FOR UNKNOWN INDICATION
  9. MORPHINE [Concomitant]
     Indication: PRODUCT USED FOR UNKNOWN INDICATION
  10. SINGULAIR [Concomitant]
     Indication: ASTHMA
  11. CLARITIN [Concomitant]
     Indication: SEASONAL ALLERGY

REACTIONS (7)
  - Pneumonia [Recovered/Resolved]
  - Staphylococcal infection [Not Recovered/Not Resolved]
  - Staphylococcal infection [Recovered/Resolved]
  - Impaired healing [Not Recovered/Not Resolved]
  - Wound [Unknown]
  - Malaise [Recovered/Resolved]
  - Hepatic enzyme increased [Unknown]
